FAERS Safety Report 5191769-X (Version None)
Quarter: 2006Q4

REPORT INFORMATION
  Report Type: 
  Country: None (occurrence: None)
  Receive Date: 20061219
  Receipt Date: 20061213
  Transmission Date: 20070319
  Serious: Yes (Disabling)
  Sender: FDA-Public Use
  Company Number: CH-2006-034106

PATIENT
  Age: 44 Year
  Sex: Female

DRUGS (2)
  1. YASMIN [Suspect]
     Dosage: 1 TAB(S), ORAL
     Route: 048
     Dates: start: 20031101, end: 20050401
  2. YASMINELLE (21) (DROSPIRENONE, ETHINYLESTRADIOL) FILM TABLET [Suspect]
     Dosage: 1 TAB(S), ORAL
     Route: 048
     Dates: start: 20050401

REACTIONS (2)
  - MONOPLEGIA [None]
  - THERAPY NON-RESPONDER [None]
